FAERS Safety Report 9707925 (Version 2)
Quarter: 2013Q4

REPORT INFORMATION
  Report Type: Spontaneous
  Country: US (occurrence: US)
  Receive Date: 20131125
  Receipt Date: 20131125
  Transmission Date: 20140711
  Serious: No
  Sender: FDA-Public Use
  Company Number: US-TEVA-331349USA

PATIENT
  Age: 40 Year
  Sex: Female
  Weight: 59.02 kg

DRUGS (3)
  1. PARAGARD 380A [Suspect]
     Indication: CONTRACEPTION
     Route: 015
     Dates: start: 20081231, end: 20120402
  2. MULTIVITAMIN                       /00831701/ [Concomitant]
  3. SALBUTAMOL [Concomitant]
     Route: 055

REACTIONS (6)
  - Pregnancy with contraceptive device [Unknown]
  - Embedded device [Unknown]
  - Device breakage [Not Recovered/Not Resolved]
  - Menstruation delayed [Not Recovered/Not Resolved]
  - Drug ineffective [Unknown]
  - Breast tenderness [Unknown]
